FAERS Safety Report 20141561 (Version 2)
Quarter: 2022Q1

REPORT INFORMATION
  Report Type: Report from Study
  Country: US (occurrence: US)
  Receive Date: 20211202
  Receipt Date: 20220209
  Transmission Date: 20220423
  Serious: No
  Sender: FDA-Public Use
  Company Number: US-HTU-2021US023987

PATIENT
  Sex: Female
  Weight: 79.587 kg

DRUGS (1)
  1. TRUSELTIQ [Suspect]
     Active Substance: INFIGRATINIB
     Indication: Cholangiocarcinoma
     Dosage: 100 MG DAILY FOR 21 DAYS, 7 DAYS OFF.
     Route: 048
     Dates: start: 20211016

REACTIONS (1)
  - Gait inability [Unknown]
